FAERS Safety Report 6920123-2 (Version None)
Quarter: 2010Q3

REPORT INFORMATION
  Report Type: 
  Country: None (occurrence: None)
  Receive Date: 20100811
  Receipt Date: 20100804
  Transmission Date: 20110219
  Serious: Yes (Hospitalization)
  Sender: FDA-Public Use
  Company Number: ES-SANOFI-AVENTIS-2010SA029199

PATIENT
  Age: 68 Year
  Sex: Male

DRUGS (2)
  1. DOCETAXEL [Suspect]
     Route: 041
     Dates: start: 20100511, end: 20100511
  2. CISPLATINO [Suspect]
     Route: 041
     Dates: start: 20100511, end: 20100511

REACTIONS (5)
  - ANAEMIA [None]
  - ASTHENIA [None]
  - BLOOD CREATININE INCREASED [None]
  - DIARRHOEA [None]
  - HYPERKALAEMIA [None]
